FAERS Safety Report 7506059-7 (Version None)
Quarter: 2011Q2

REPORT INFORMATION
  Report Type: 
  Country: None (occurrence: None)
  Receive Date: 20110526
  Receipt Date: 20110519
  Transmission Date: 20111010
  Serious: Yes (Hospitalization)
  Sender: FDA-Public Use
  Company Number: FR-ROCHE-778346

PATIENT
  Age: 59 Year
  Sex: Female

DRUGS (7)
  1. ROCEPHIN [Concomitant]
     Indication: URINARY TRACT INFECTION
  2. CELLCEPT [Concomitant]
     Dates: start: 20100901
  3. PREDNISONE [Concomitant]
     Dates: start: 20100901
  4. PROGRAF [Concomitant]
     Dates: start: 20100901, end: 20101101
  5. VALACYCLOVIR [Suspect]
     Route: 065
     Dates: start: 20100901
  6. CIPROFLOXACIN [Concomitant]
     Indication: URINARY TRACT INFECTION
  7. BACTRIM [Concomitant]
     Dates: start: 20100901, end: 20101101

REACTIONS (8)
  - PYREXIA [None]
  - PERICARDIAL EFFUSION [None]
  - GASTRIC ULCER [None]
  - LYMPHOPENIA [None]
  - APHTHOUS STOMATITIS [None]
  - PLEURAL EFFUSION [None]
  - DIARRHOEA [None]
  - WEIGHT DECREASED [None]
